FAERS Safety Report 6633554-5 (Version None)
Quarter: 2010Q1

REPORT INFORMATION
  Report Type: 
  Country: None (occurrence: None)
  Receive Date: 20100312
  Receipt Date: 20100305
  Transmission Date: 20100710
  Serious: Yes (Other)
  Sender: FDA-Public Use
  Company Number: ZA-ABBOTT-10P-143-0626568-00

PATIENT
  Sex: Female

DRUGS (4)
  1. ALUVIA TABLETS [Suspect]
     Indication: HIV INFECTION
     Dosage: 200MG/50MG DISPENSED AS 2 TABS BID
     Route: 048
     Dates: start: 20100101
  2. ALUVIA TABLETS [Suspect]
  3. ABACAVIR [Concomitant]
     Indication: HIV INFECTION
     Route: 048
  4. DIDANOSINE [Concomitant]
     Indication: HIV INFECTION
     Route: 048

REACTIONS (4)
  - DRUG PRESCRIBING ERROR [None]
  - HOT FLUSH [None]
  - HYPOGLYCAEMIA [None]
  - PARAESTHESIA [None]
